FAERS Safety Report 19609444 (Version 1)
Quarter: 2021Q3

REPORT INFORMATION
  Report Type: Spontaneous
  Country: US (occurrence: US)
  Receive Date: 20210726
  Receipt Date: 20210726
  Transmission Date: 20211014
  Serious: Yes (Hospitalization)
  Sender: FDA-Public Use
  Company Number: None

PATIENT
  Age: 86 Year
  Sex: Female
  Weight: 44.55 kg

DRUGS (1)
  1. CLINDAMYCIN HCL 150MG CAPSULES [Suspect]
     Active Substance: CLINDAMYCIN HYDROCHLORIDE
     Dosage: ?          QUANTITY:1 CAPSULE(S);?
     Route: 048
     Dates: start: 20201101, end: 20210201

REACTIONS (6)
  - Diarrhoea [None]
  - Pain [None]
  - Overdose [None]
  - Drug hypersensitivity [None]
  - Epistaxis [None]
  - Vomiting [None]

NARRATIVE: CASE EVENT DATE: 20210201
